FAERS Safety Report 10077671 (Version 1)
Quarter: 2014Q2

REPORT INFORMATION
  Report Type: Report from Study
  Country: ES (occurrence: ES)
  Receive Date: 20140414
  Receipt Date: 20140414
  Transmission Date: 20141212
  Serious: Yes (Death, Other)
  Sender: FDA-Public Use
  Company Number: ES-BAXTER-2014BAX018917

PATIENT
  Age: 7 Month
  Sex: 0
  Weight: 7.5 kg

DRUGS (8)
  1. GENOXAL 1 G INYECTABLE [Suspect]
     Indication: BONE MARROW CONDITIONING REGIMEN
     Dosage: FROM DAYS -5 TO -2
     Route: 042
  2. KIOVIG 100 MG/ML SOLUCI?N PARA PERFUSI?N 20G/200ML [Suspect]
     Indication: BONE MARROW CONDITIONING REGIMEN
     Route: 042
  3. FLUCONAZOLE [Suspect]
     Indication: INFECTION PROPHYLAXIS
     Route: 065
  4. BUSULPHAN [Suspect]
     Indication: BONE MARROW CONDITIONING REGIMEN
     Dosage: IN DIVIDED DOSES FROM DAYS -9 TO -6
     Route: 065
  5. ACYCLOVIR [Suspect]
     Indication: INFECTION PROPHYLAXIS
     Route: 065
  6. COTRIMOXAZOLE [Suspect]
     Indication: INFECTION PROPHYLAXIS
     Route: 065
  7. METHYLPREDNISOLONE [Suspect]
     Indication: PROPHYLAXIS AGAINST GRAFT VERSUS HOST DISEASE
     Dosage: FROM DAY +5
     Route: 065
  8. CYCLOSPORINE [Suspect]
     Indication: PROPHYLAXIS AGAINST GRAFT VERSUS HOST DISEASE
     Dosage: STARTED ON DAYS -2 OR -1
     Route: 065

REACTIONS (2)
  - Acute graft versus host disease [Unknown]
  - Death [Fatal]
